FAERS Safety Report 20495124 (Version 6)
Quarter: 2022Q2

REPORT INFORMATION
  Report Type: Spontaneous
  Country: JP (occurrence: JP)
  Receive Date: 20220221
  Receipt Date: 20220629
  Transmission Date: 20220721
  Serious: Yes (Hospitalization, Other)
  Sender: FDA-Public Use
  Company Number: JP-BRISTOL-MYERS SQUIBB COMPANY-BMS-2021-121759

PATIENT
  Sex: Male

DRUGS (4)
  1. YERVOY [Suspect]
     Active Substance: IPILIMUMAB
     Indication: Non-small cell lung cancer
     Dosage: UNK
     Route: 041
  2. OPDIVO [Suspect]
     Active Substance: NIVOLUMAB
     Indication: Non-small cell lung cancer
     Dosage: UNK
     Route: 041
  3. CARBOPLATIN [Suspect]
     Active Substance: CARBOPLATIN
     Indication: Non-small cell lung cancer
     Dosage: UNK
     Route: 065
  4. PACLITAXEL [Suspect]
     Active Substance: PACLITAXEL
     Indication: Non-small cell lung cancer
     Dosage: UNK
     Route: 065

REACTIONS (12)
  - Coma [Unknown]
  - Type 1 diabetes mellitus [Unknown]
  - Pneumonia klebsiella [Unknown]
  - Immune-mediated lung disease [Unknown]
  - Diabetic ketoacidosis [Unknown]
  - Rash [Unknown]
  - Dizziness [Unknown]
  - Decreased appetite [Unknown]
  - Vomiting [Unknown]
  - Somnolence [Unknown]
  - Pollakiuria [Unknown]
  - Thirst [Unknown]
